FAERS Safety Report 8510552-8 (Version None)
Quarter: 2012Q3

REPORT INFORMATION
  Report Type: 
  Country: None (occurrence: None)
  Receive Date: 20120716
  Receipt Date: 20120706
  Transmission Date: 20120928
  Serious: Yes (Other)
  Sender: FDA-Public Use
  Company Number: US-BIOGENIDEC-2012BI014759

PATIENT
  Age: 49 Year
  Sex: Male

DRUGS (4)
  1. AVONEX [Concomitant]
     Indication: MULTIPLE SCLEROSIS
     Route: 030
     Dates: start: 20120706
  2. METHYLPREDNISONE IV [Concomitant]
     Indication: MULTIPLE SCLEROSIS
  3. TYSABRI [Suspect]
     Indication: MULTIPLE SCLEROSIS
     Route: 042
     Dates: start: 20090716, end: 20110602
  4. STEROIDS (NOS) [Concomitant]
     Indication: MULTIPLE SCLEROSIS

REACTIONS (6)
  - DEPRESSION [None]
  - ASTHENIA [None]
  - FATIGUE [None]
  - RENAL CANCER [None]
  - WHITE BLOOD CELL COUNT DECREASED [None]
  - PAIN [None]
